FAERS Safety Report 9352383 (Version 1)
Quarter: 2013Q2

REPORT INFORMATION
  Report Type: Spontaneous
  Country: CA (occurrence: CA)
  Receive Date: 20130617
  Receipt Date: 20130617
  Transmission Date: 20140414
  Serious: Yes (Other)
  Sender: FDA-Public Use
  Company Number: CA-ELI_LILLY_AND_COMPANY-CA201306003131

PATIENT
  Age: 70 Year
  Sex: Male

DRUGS (15)
  1. FORTEO [Suspect]
     Indication: OSTEOPOROSIS
     Dosage: 20 UG, QD
     Route: 058
     Dates: start: 20110614, end: 20130601
  2. ULTRAM [Concomitant]
     Dosage: UNK, UNKNOWN
     Route: 065
  3. ELTROXIN [Concomitant]
     Dosage: UNK, UNKNOWN
     Route: 065
  4. TACROLIMUS [Concomitant]
     Dosage: UNK, UNKNOWN
     Route: 065
  5. TYLENOL                                 /SCH/ [Concomitant]
     Dosage: UNK, UNKNOWN
     Route: 065
  6. MYCOPHENOLATE [Concomitant]
     Dosage: UNK, UNKNOWN
     Route: 065
  7. AMLODIPINE [Concomitant]
     Dosage: UNK, UNKNOWN
     Route: 065
  8. PANTOPRAZOLE [Concomitant]
     Dosage: UNK, UNKNOWN
     Route: 065
  9. CLOTRIMAZOLE [Concomitant]
     Dosage: UNK, UNKNOWN
     Route: 065
  10. LASIX [Concomitant]
     Dosage: UNK, UNKNOWN
     Route: 065
  11. URSODIOL [Concomitant]
     Dosage: UNK, UNKNOWN
     Route: 065
  12. CENTRUM FORTE [Concomitant]
     Dosage: UNK, UNKNOWN
     Route: 065
  13. VITAMIN D [Concomitant]
     Dosage: UNK, UNKNOWN
     Route: 065
  14. CALCIUM [Concomitant]
     Dosage: UNK, UNKNOWN
     Route: 065
  15. MAGNESIUM [Concomitant]
     Dosage: UNK, UNKNOWN
     Route: 065

REACTIONS (1)
  - Neoplasm malignant [Not Recovered/Not Resolved]
